FAERS Safety Report 18054596 (Version 2)
Quarter: 2020Q3

REPORT INFORMATION
  Report Type: Spontaneous
  Country: JP (occurrence: JP)
  Receive Date: 20200722
  Receipt Date: 20200810
  Transmission Date: 20201103
  Serious: Yes (Hospitalization, Other)
  Sender: FDA-Public Use
  Company Number: JP-PFIZER INC-2020278000

PATIENT
  Age: 76 Year
  Sex: Female

DRUGS (1)
  1. REVATIO [Suspect]
     Active Substance: SILDENAFIL CITRATE
     Dosage: UNK

REACTIONS (9)
  - Back pain [Unknown]
  - Renal impairment [Unknown]
  - Drug level increased [Unknown]
  - Arthralgia [Unknown]
  - Inflammation [Unknown]
  - Anaemia [Unknown]
  - Spondylitis [Unknown]
  - Psoas abscess [Unknown]
  - Pyelonephritis [Unknown]
